FAERS Safety Report 9216738 (Version 1)
Quarter: 2013Q2

REPORT INFORMATION
  Report Type: Spontaneous
  Country: US (occurrence: US)
  Receive Date: 20130405
  Receipt Date: 20130405
  Transmission Date: 20140414
  Serious: No
  Sender: FDA-Public Use
  Company Number: US-BRACCO-008971

PATIENT
  Age: 18 Month
  Sex: 0

DRUGS (2)
  1. GASTROGRAFIN [Suspect]
     Indication: DIAGNOSTIC PROCEDURE
     Route: 042
  2. GASTROGRAFIN [Suspect]
     Indication: PRODUCT USED FOR UNKNOWN INDICATION
     Route: 042

REACTIONS (1)
  - Drug administration error [Unknown]
